FAERS Safety Report 6215720-6 (Version None)
Quarter: 2009Q2

REPORT INFORMATION
  Report Type: 
  Country: None (occurrence: None)
  Receive Date: 20090603
  Receipt Date: 20090603
  Transmission Date: 20091009
  Serious: Yes (Other)
  Sender: FDA-Public Use
  Company Number: None

PATIENT
  Sex: Female
  Weight: 49.8957 kg

DRUGS (2)
  1. CLINDAMYCIN [Suspect]
     Indication: TOOTH ABSCESS
     Dosage: 150 MG 2 TWO TIMES A DAY MOUTH
     Route: 048
     Dates: start: 20090506, end: 20090509
  2. ATANOL [Concomitant]

REACTIONS (1)
  - FALL [None]
